FAERS Safety Report 8146280-0 (Version None)
Quarter: 2012Q1

REPORT INFORMATION
  Report Type: 
  Country: None (occurrence: None)
  Receive Date: 20120217
  Receipt Date: 20120110
  Transmission Date: 20120608
  Serious: No
  Sender: FDA-Public Use
  Company Number: US-ABBOTT-11P-163-0883311-00

PATIENT
  Sex: Male
  Weight: 97.61 kg

DRUGS (5)
  1. XANAX [Concomitant]
     Indication: ANXIETY
  2. MULTI-VITAMINS [Concomitant]
     Indication: PRODUCT USED FOR UNKNOWN INDICATION
  3. SIMCOR [Suspect]
     Indication: HIGH DENSITY LIPOPROTEIN DECREASED
     Dosage: 500/20MG
     Dates: start: 20091201
  4. SIMCOR [Suspect]
     Indication: BLOOD TRIGLYCERIDES INCREASED
  5. SIMCOR [Suspect]
     Indication: HEPATIC STEATOSIS

REACTIONS (3)
  - BACK PAIN [None]
  - FLUSHING [None]
  - VITAMIN D DECREASED [None]
